FAERS Safety Report 9699332 (Version 2)
Quarter: 2013Q4

REPORT INFORMATION
  Report Type: Spontaneous
  Country: US (occurrence: US)
  Receive Date: 20131120
  Receipt Date: 20131120
  Transmission Date: 20140711
  Serious: No
  Sender: FDA-Public Use
  Company Number: US-GILEAD-2008-0015640

PATIENT
  Age: 87 Year
  Sex: Female

DRUGS (9)
  1. LETAIRIS [Suspect]
     Indication: PULMONARY ARTERIAL HYPERTENSION
     Route: 048
     Dates: start: 20080228
  2. TYLENOL [Concomitant]
     Route: 048
  3. REVATIO [Concomitant]
     Indication: PULMONARY ARTERIAL HYPERTENSION
     Route: 048
  4. LASIX [Concomitant]
     Route: 048
  5. URISED [Concomitant]
  6. PRILOSEC [Concomitant]
     Indication: GASTROOESOPHAGEAL REFLUX DISEASE
     Route: 048
  7. CENTRUM SILVER [Concomitant]
     Route: 048
  8. COUMADIN [Concomitant]
     Route: 048
  9. COUMADIN [Concomitant]
     Route: 048

REACTIONS (2)
  - Nasal congestion [Unknown]
  - Dyspnoea [Unknown]
